FAERS Safety Report 7691496-0 (Version None)
Quarter: 2011Q3

REPORT INFORMATION
  Report Type: 
  Country: None (occurrence: None)
  Receive Date: 20110818
  Receipt Date: 20110811
  Transmission Date: 20111222
  Serious: Yes (Other)
  Sender: FDA-Public Use
  Company Number: JP-JNJFOC-20110806064

PATIENT
  Age: 78 Year
  Sex: Male

DRUGS (2)
  1. TRAMADOL HYDROCHLORIDE/ACETAMINOPHEN [Suspect]
     Dosage: 2 TABLETS PER DAY TWICE DAILY
     Route: 048
     Dates: start: 20110729, end: 20110801
  2. TRAMADOL HYDROCHLORIDE/ACETAMINOPHEN [Suspect]
     Indication: POST HERPETIC NEURALGIA
     Dosage: 1 TABLET PER DAY
     Route: 048
     Dates: start: 20110802, end: 20110803

REACTIONS (4)
  - SOMNOLENCE [None]
  - FEELING ABNORMAL [None]
  - THERAPEUTIC RESPONSE DECREASED [None]
  - DIZZINESS [None]
